FAERS Safety Report 17671409 (Version 1)
Quarter: 2020Q2

REPORT INFORMATION
  Report Type: Spontaneous
  Country: DE (occurrence: DE)
  Receive Date: 20200415
  Receipt Date: 20200415
  Transmission Date: 20200713
  Serious: Yes (Hospitalization)
  Sender: FDA-Public Use
  Company Number: DE-MYLANLABS-2020M1038013

PATIENT
  Age: 21 Year
  Sex: Female
  Weight: 57 kg

DRUGS (3)
  1. EVALUNA [Concomitant]
     Active Substance: ETHINYL ESTRADIOL\LEVONORGESTREL
     Indication: CONTRACEPTION
     Dosage: UNK, PAUSED ON 30-JAN-2020 AND 31-JAN-2020
     Dates: start: 20200111, end: 20200129
  2. IBEROGAST [Suspect]
     Active Substance: HERBALS
     Indication: ABDOMINAL PAIN
     Dosage: 25 GTT, TID
     Route: 048
     Dates: start: 20200123, end: 20200129
  3. PANTOPRAZOLE [Suspect]
     Active Substance: PANTOPRAZOLE
     Indication: ABDOMINAL PAIN
     Dosage: 20 MG, QD
     Route: 048
     Dates: start: 20200123, end: 20200129

REACTIONS (2)
  - Incorrect dose administered [Unknown]
  - Liver function test increased [Recovering/Resolving]

NARRATIVE: CASE EVENT DATE: 20200128
